FAERS Safety Report 14833275 (Version 2)
Quarter: 2018Q2

REPORT INFORMATION
  Report Type: Spontaneous
  Country: BR (occurrence: BR)
  Receive Date: 20180501
  Receipt Date: 20180514
  Transmission Date: 20180711
  Serious: Yes (Life-Threatening, Hospitalization)
  Sender: FDA-Public Use
  Company Number: BR-US WORLDMEDS, LLC-USW201804-000677

PATIENT
  Sex: Male
  Weight: 64 kg

DRUGS (6)
  1. PHENOBARBITAL. [Concomitant]
     Active Substance: PHENOBARBITAL
  2. ZELNORM [Suspect]
     Active Substance: TEGASEROD MALEATE
     Indication: MEGACOLON
     Route: 048
     Dates: start: 2006
  3. TEGRETOL [Concomitant]
     Active Substance: CARBAMAZEPINE
  4. DIAZEPAM. [Concomitant]
     Active Substance: DIAZEPAM
  5. NEOSINE [Concomitant]
     Active Substance: INOSINE PRANOBEX
     Indication: INTELLECTUAL DISABILITY
  6. RISPERIDONE. [Concomitant]
     Active Substance: RISPERIDONE

REACTIONS (2)
  - Dyschezia [Unknown]
  - Apparent death [Unknown]
